FAERS Safety Report 5974468-3 (Version None)
Quarter: 2008Q4

REPORT INFORMATION
  Report Type: 
  Country: None (occurrence: None)
  Receive Date: 20081201
  Receipt Date: 20081125
  Transmission Date: 20090506
  Serious: Yes (Other)
  Sender: FDA-Public Use
  Company Number: US-PFIZER INC-2008099410

PATIENT
  Sex: Female
  Weight: 113.4 kg

DRUGS (11)
  1. CHANTIX [Suspect]
     Indication: SMOKING CESSATION THERAPY
     Route: 048
     Dates: start: 20080101, end: 20080601
  2. OXYCONTIN [Concomitant]
     Route: 048
  3. ADVAIR HFA [Concomitant]
     Route: 048
  4. WELLBUTRIN [Concomitant]
     Route: 048
  5. CELEBREX [Concomitant]
     Route: 048
  6. NEURONTIN [Concomitant]
     Route: 048
  7. POTASSIUM CHLORIDE [Concomitant]
     Route: 048
  8. PREDNISONE TAB [Concomitant]
     Route: 048
  9. ASCORBIC ACID [Concomitant]
     Route: 048
  10. OSCAL [Concomitant]
     Route: 048
  11. MULTI-VITAMINS [Concomitant]
     Route: 048

REACTIONS (2)
  - DIABETES MELLITUS [None]
  - LOWER LIMB FRACTURE [None]
